FAERS Safety Report 5293200-2 (Version None)
Quarter: 2007Q2

REPORT INFORMATION
  Report Type: 
  Country: None (occurrence: None)
  Receive Date: 20070411
  Receipt Date: 20070323
  Transmission Date: 20071010
  Serious: Yes (Death)
  Sender: FDA-Public Use
  Company Number: US-JNJFOC-20070300504

PATIENT
  Sex: Female
  Weight: 66.68 kg

DRUGS (6)
  1. REMICADE [Suspect]
     Indication: RHEUMATOID ARTHRITIS
     Route: 042
  2. REMICADE [Suspect]
     Indication: CROHN'S DISEASE
     Route: 042
  3. ASACOL [Concomitant]
  4. PROTONIX [Concomitant]
  5. CLARITIN [Concomitant]
  6. NASACORT [Concomitant]

REACTIONS (2)
  - MENINGITIS PNEUMOCOCCAL [None]
  - SEPSIS [None]
